FAERS Safety Report 4307144-3 (Version None)
Quarter: 2004Q1

REPORT INFORMATION
  Report Type: 
  Country: None (occurrence: None)
  Receive Date: 20040225
  Receipt Date: 20040213
  Transmission Date: 20041129
  Serious: Yes (Other)
  Sender: FDA-Public Use
  Company Number: JP-JNJFOC-20040201907

PATIENT
  Age: 47 Year
  Sex: Female

DRUGS (4)
  1. RISPERDAL [Suspect]
     Dosage: 2 ML, IN 1 DAY, ORAL; 8 ML, 1 IN 1 DAY
     Route: 048
     Dates: end: 20040129
  2. RISPERDAL [Suspect]
     Dosage: 2 ML, IN 1 DAY, ORAL; 8 ML, 1 IN 1 DAY
     Route: 048
     Dates: start: 20040131, end: 20040204
  3. RISPERDAL [Suspect]
     Dosage: 3 ML, 1 IN 1 DAY
     Dates: start: 20040130, end: 20040130
  4. LORAZEPAM (UNSPECIFIED) LORAZEPAM [Concomitant]

REACTIONS (2)
  - BLOOD CREATINE PHOSPHOKINASE INCREASED [None]
  - LEUKOPENIA [None]
